FAERS Safety Report 8270292-X (Version None)
Quarter: 2012Q2

REPORT INFORMATION
  Report Type: 
  Country: None (occurrence: None)
  Receive Date: 20120410
  Receipt Date: 20120330
  Transmission Date: 20120825
  Serious: Yes (Other)
  Sender: FDA-Public Use
  Company Number: CA-SANOFI-AVENTIS-2012SA002514

PATIENT
  Age: 77 Year
  Sex: Female

DRUGS (5)
  1. METOPROLOL TARTRATE [Concomitant]
     Indication: HYPERTENSION
     Route: 048
  2. ROSUVASTATIN CALCIUM [Concomitant]
     Route: 048
     Dates: start: 20070101
  3. RAMIPRIL [Concomitant]
     Indication: HYPERTENSION
     Route: 048
     Dates: start: 20070101
  4. MULTAQ [Suspect]
     Indication: ATRIAL FIBRILLATION
     Route: 048
     Dates: start: 20100501, end: 20120219
  5. LOPERAMIDE [Concomitant]
     Route: 048
     Dates: start: 20100601, end: 20120219

REACTIONS (7)
  - ATRIAL FIBRILLATION [None]
  - SYNCOPE [None]
  - AMNESIA [None]
  - DIZZINESS [None]
  - BALANCE DISORDER [None]
  - FALL [None]
  - DIARRHOEA [None]
